FAERS Safety Report 16278911 (Version 1)
Quarter: 2019Q2

REPORT INFORMATION
  Report Type: Spontaneous
  Country: US (occurrence: US)
  Receive Date: 20190506
  Receipt Date: 20190506
  Transmission Date: 20190711
  Serious: Yes (Other)
  Sender: FDA-Public Use
  Company Number: PHHY2019US102574

PATIENT
  Sex: Female

DRUGS (2)
  1. XELODA [Suspect]
     Active Substance: CAPECITABINE
     Indication: TRIPLE NEGATIVE BREAST CANCER
     Dosage: UNK
     Route: 065
     Dates: start: 201807, end: 201903
  2. LAPATINIB [Suspect]
     Active Substance: LAPATINIB
     Indication: TRIPLE NEGATIVE BREAST CANCER
     Dosage: UNK
     Route: 065
     Dates: start: 201807, end: 201903

REACTIONS (2)
  - Triple negative breast cancer [Unknown]
  - Malignant neoplasm progression [Unknown]
